FAERS Safety Report 23312735 (Version 1)
Quarter: 2023Q4

REPORT INFORMATION
  Report Type: Spontaneous
  Country: FR (occurrence: FR)
  Receive Date: 20231219
  Receipt Date: 20231219
  Transmission Date: 20240109
  Serious: Yes (Hospitalization)
  Sender: FDA-Public Use
  Company Number: None

PATIENT
  Age: 45 Year

DRUGS (1)
  1. TAMOXIFEN CITRATE [Suspect]
     Active Substance: TAMOXIFEN CITRATE
     Indication: Invasive ductal breast carcinoma
     Dosage: TAMOXIFENE (CITRATE DE)
     Route: 048
     Dates: start: 202001

REACTIONS (2)
  - Carotid artery dissection [Recovering/Resolving]
  - Horner^s syndrome [Recovering/Resolving]

NARRATIVE: CASE EVENT DATE: 20231019
